FAERS Safety Report 6104623-3 (Version None)
Quarter: 2009Q1

REPORT INFORMATION
  Report Type: 
  Country: None (occurrence: None)
  Receive Date: 20090304
  Receipt Date: 20090217
  Transmission Date: 20090719
  Serious: Yes (Other)
  Sender: FDA-Public Use
  Company Number: 2009-US-000385

PATIENT
  Age: 14 Year
  Sex: Male
  Weight: 42.6 kg

DRUGS (2)
  1. INCRELEX [Suspect]
     Indication: INSULIN-LIKE GROWTH FACTOR DECREASED
     Dosage: 4.3 MG, BID, SUBCUTANEOUS
     Route: 058
     Dates: start: 20071101
  2. NEXIUM [Concomitant]

REACTIONS (2)
  - RETINAL DETACHMENT [None]
  - VITREOUS HAEMORRHAGE [None]
